FAERS Safety Report 16022208 (Version 1)
Quarter: 2019Q1

REPORT INFORMATION
  Report Type: Spontaneous
  Country: ES (occurrence: ES)
  Receive Date: 20190301
  Receipt Date: 20190301
  Transmission Date: 20190418
  Serious: Yes (Hospitalization, Other)
  Sender: FDA-Public Use
  Company Number: ES-AUROBINDO-AUR-APL-2019-010314

PATIENT

DRUGS (12)
  1. LEVOFLOXACINO [Concomitant]
     Active Substance: LEVOFLOXACIN
     Indication: RESPIRATORY TRACT INFECTION
     Dosage: 500 MILLIGRAM, ONCE A DAY
     Route: 048
     Dates: start: 20190104, end: 20190110
  2. TRAMADOL. [Suspect]
     Active Substance: TRAMADOL
     Indication: SCIATICA
     Dosage: 150 MILLIGRAM, TWO TIMES A DAY
     Route: 048
     Dates: start: 20180308, end: 20190110
  3. VALSARTAN. [Concomitant]
     Active Substance: VALSARTAN
     Indication: PRODUCT USED FOR UNKNOWN INDICATION
     Dosage: 40 MILLIGRAM, ONCE A DAY
     Route: 048
  4. ATORVASTATIN [Concomitant]
     Active Substance: ATORVASTATIN
     Indication: PRODUCT USED FOR UNKNOWN INDICATION
     Dosage: 10 MILLIGRAM, ONCE A DAY
     Route: 048
  5. FUROSEMIDA [Concomitant]
     Active Substance: FUROSEMIDE
     Indication: PRODUCT USED FOR UNKNOWN INDICATION
     Dosage: 40 MILLIGRAM, ONCE A DAY
     Route: 048
  6. LYRICA [Concomitant]
     Active Substance: PREGABALIN
     Indication: PRODUCT USED FOR UNKNOWN INDICATION
     Dosage: 150 MILLIGRAM, TWO TIMES A DAY
     Route: 048
  7. PANTOPRAZOL [Concomitant]
     Active Substance: PANTOPRAZOLE SODIUM
     Indication: PRODUCT USED FOR UNKNOWN INDICATION
     Dosage: 40 MILLIGRAM, ONCE A DAY
     Route: 048
  8. FLUIDASA (MEPYRAMINE THEOPHYLLINE ACETATE) [Interacting]
     Active Substance: MEPIFYLLINE
     Indication: RESPIRATORY TRACT INFECTION
     Dosage: 5 MILLILITER, 3 TIMES A DAY
     Route: 048
     Dates: start: 20190104, end: 20190110
  9. FOSFOMICINA [Concomitant]
     Indication: RESPIRATORY TRACT INFECTION
     Dosage: 3 GRAM, ONCE A DAY
     Route: 048
     Dates: start: 20190109, end: 20190111
  10. PALEXIA [Interacting]
     Active Substance: TAPENTADOL HYDROCHLORIDE
     Indication: SCIATICA
     Dosage: 50 MILLIGRAM, TWO TIMES A DAY
     Route: 048
     Dates: start: 20140626
  11. VERSATIS [Concomitant]
     Active Substance: LIDOCAINE
     Indication: SCIATICA
     Dosage: UNK UNK, ONCE A DAY
     Route: 003
  12. METAMIZOL [Concomitant]
     Active Substance: METAMIZOLE SODIUM
     Indication: SCIATICA
     Dosage: 575 MILLIGRAM, 3 TIMES A DAY
     Route: 048

REACTIONS (1)
  - Coma [Recovered/Resolved]

NARRATIVE: CASE EVENT DATE: 20190110
